FAERS Safety Report 4968621-5 (Version None)
Quarter: 2006Q2

REPORT INFORMATION
  Report Type: 
  Country: None (occurrence: None)
  Receive Date: 20060411
  Receipt Date: 20060331
  Transmission Date: 20061013
  Serious: Yes (Life-Threatening, Other)
  Sender: FDA-Public Use
  Company Number: NO-JNJFOC-20050105091

PATIENT
  Sex: Male

DRUGS (13)
  1. REMICADE [Suspect]
     Indication: ARTHRITIS
     Route: 042
  2. REMICADE [Suspect]
     Route: 042
  3. NEXIUM [Concomitant]
     Route: 048
  4. FOSAMAX [Concomitant]
     Indication: OSTEOPOROSIS
     Route: 048
  5. PLAQUENIL [Concomitant]
     Indication: ARTHRITIS
     Route: 048
  6. COZAAR [Concomitant]
     Route: 048
  7. COZAAR [Concomitant]
     Indication: HYPERTENSION
     Route: 048
  8. TENORMIN [Concomitant]
     Indication: HYPERTENSION
     Route: 048
  9. CALCIUM GLUCONATE [Concomitant]
     Indication: OSTEOPOROSIS
     Route: 048
  10. PREDNISOLONE [Concomitant]
     Indication: REITER'S SYNDROME
     Route: 065
  11. NORVASC [Concomitant]
     Route: 065
  12. DIURAL [Concomitant]
     Route: 065
  13. ETALPHA [Concomitant]
     Route: 065

REACTIONS (4)
  - ANTINUCLEAR ANTIBODY POSITIVE [None]
  - DNA ANTIBODY POSITIVE [None]
  - NEPHROTIC SYNDROME [None]
  - TONGUE NEOPLASM MALIGNANT STAGE UNSPECIFIED [None]
